FAERS Safety Report 23995913 (Version 1)
Quarter: 2024Q2

REPORT INFORMATION
  Report Type: Spontaneous
  Country: US (occurrence: US)
  Receive Date: 20240620
  Receipt Date: 20240620
  Transmission Date: 20240716
  Serious: No
  Sender: FDA-Public Use
  Company Number: US-PFIZER INC-PV202400077439

PATIENT
  Age: 79 Year
  Sex: Female

DRUGS (2)
  1. BRAFTOVI [Suspect]
     Active Substance: ENCORAFENIB
     Dosage: TAKE 4-75 MG CAPSULES PO (PER ORAL) QD (ONCE A DAY)
     Route: 048
  2. LOMOTIL [Concomitant]
     Active Substance: ATROPINE SULFATE\DIPHENOXYLATE HYDROCHLORIDE
     Dosage: TAKE 1 TABLET EVERY FOUR HOURS AS NEEDED TAKE 2 TABLETS INITIALLY THEN TAKE 1 TABLET EVERY 4 HOURS
     Route: 048

REACTIONS (1)
  - Brain fog [Unknown]

NARRATIVE: CASE EVENT DATE: 20230327
